FAERS Safety Report 9784119 (Version 3)
Quarter: 2014Q3

REPORT INFORMATION
  Report Type: Report from Study
  Country: JP (occurrence: JP)
  Receive Date: 20131226
  Receipt Date: 20140801
  Transmission Date: 20150326
  Serious: Yes (Life-Threatening, Hospitalization)
  Sender: FDA-Public Use
  Company Number: JP-BAYER-2013-154733

PATIENT
  Age: 41 Year
  Sex: Female
  Weight: 46 kg

DRUGS (15)
  1. STIVARGA [Suspect]
     Active Substance: REGORAFENIB
     Indication: COLON CANCER
     Dosage: ONE CYCLE IS 160 MG/DAY ON FOR 3 WEEKS AND OF OR 1 WEEK
     Route: 048
     Dates: start: 20131127, end: 20131211
  2. LYRICA [Concomitant]
     Active Substance: PREGABALIN
     Dosage: DAILY DOSE 300 MG
     Route: 048
     Dates: end: 20131218
  3. KERATINAMIN [Concomitant]
     Active Substance: UREA
     Indication: DRUG TOXICITY PROPHYLAXIS
     Dosage: UNK
     Route: 061
  4. LENDORMIN [Concomitant]
     Active Substance: BROTIZOLAM
     Dosage: DAILY DOSE 0.25 MG
     Route: 048
  5. LOCOID [Concomitant]
     Active Substance: HYDROCORTISONE BUTYRATE
     Indication: DRUG TOXICITY PROPHYLAXIS
     Dosage: UNK
     Route: 061
  6. OXYFAST [Suspect]
     Active Substance: OXYCODONE
     Dosage: UNK
     Dates: start: 20131216
  7. NEXIUM [Concomitant]
     Active Substance: ESOMEPRAZOLE MAGNESIUM
     Indication: GASTRITIS PROPHYLAXIS
     Dosage: DAILY DOSE 20 MG
     Route: 048
     Dates: end: 20131218
  8. ALBUMIN TANNATE [Concomitant]
     Active Substance: ALBUMIN BOVINE\TANNIC ACID
     Dosage: DAILY DOSE 3 G
     Route: 048
     Dates: end: 20131218
  9. THIATON [Concomitant]
     Active Substance: TIQUIZIUM BROMIDE
     Dosage: DAILY DOSE 30 MG
     Route: 048
     Dates: end: 20131218
  10. HIRUDOID [Concomitant]
     Active Substance: GLYCOSAMINOGLYCANS
     Indication: DRUG TOXICITY PROPHYLAXIS
     Dosage: UNK
     Route: 061
  11. ANTEBATE [Concomitant]
     Active Substance: BETAMETHASONE DIPROPIONATE
     Indication: DRUG TOXICITY PROPHYLAXIS
     Dosage: UNK
     Route: 061
  12. MS CONTIN [Concomitant]
     Active Substance: MORPHINE SULFATE
     Dosage: DAILY DOSE 80 MG
     Route: 048
     Dates: end: 20131218
  13. CALONAL [Concomitant]
     Active Substance: ACETAMINOPHEN
     Dosage: DAILY DOSE 1000 MG
     Route: 048
     Dates: end: 20131218
  14. LOPEMIN [Concomitant]
     Active Substance: LOPERAMIDE HYDROCHLORIDE
     Dosage: DAILY DOSE 2 MG
     Route: 048
     Dates: end: 20131218
  15. PRIMPERAN [Concomitant]
     Active Substance: METOCLOPRAMIDE HYDROCHLORIDE
     Indication: PROPHYLAXIS OF NAUSEA AND VOMITING
     Dosage: 5 MG, PRN
     Route: 048
     Dates: start: 20131206

REACTIONS (5)
  - Altered state of consciousness [Recovered/Resolved]
  - Aspartate aminotransferase increased [Recovered/Resolved]
  - Renal impairment [Recovered/Resolved]
  - Blood alkaline phosphatase increased [Recovered/Resolved]
  - Alanine aminotransferase increased [Recovered/Resolved]

NARRATIVE: CASE EVENT DATE: 20131204
